FAERS Safety Report 9008896 (Version 3)
Quarter: 2013Q2

REPORT INFORMATION
  Report Type: Spontaneous
  Country: US (occurrence: US)
  Receive Date: 20130111
  Receipt Date: 20130410
  Transmission Date: 20140414
  Serious: Yes (Hospitalization, Other)
  Sender: FDA-Public Use
  Company Number: US-009507513-1301USA001733

PATIENT
  Age: 48 Year
  Sex: Female
  Weight: 63.56 kg

DRUGS (32)
  1. SINGULAIR [Suspect]
     Indication: ASTHMA
     Dosage: 10 MG, UNK
     Route: 048
     Dates: start: 20010516
  2. BIAXIN [Suspect]
     Indication: NASAL CONGESTION
     Dosage: 500 MG, UNK
     Route: 048
     Dates: start: 20010504
  3. BIAXIN [Suspect]
     Indication: PYREXIA
     Dosage: 500 MG, UNK
     Route: 048
     Dates: start: 20010511
  4. BIAXIN [Suspect]
     Indication: ASTHMA
  5. BIAXIN [Suspect]
     Indication: OROPHARYNGEAL PAIN
  6. FLUTICASONE PROPIONATE [Concomitant]
     Indication: PRODUCT USED FOR UNKNOWN INDICATION
     Dosage: 110 MG, UNK
     Dates: start: 20010205
  7. VERAPAMIL HYDROCHLORIDE [Concomitant]
     Indication: EX-TOBACCO USER
     Dosage: 240 MG, UNK
  8. CLONIDINE HYDROCHLORIDE [Concomitant]
     Indication: NASAL CONGESTION
  9. CLONIDINE HYDROCHLORIDE [Concomitant]
     Indication: PALPITATIONS
  10. VITAMINS (UNSPECIFIED) [Concomitant]
     Indication: PRODUCT USED FOR UNKNOWN INDICATION
  11. AURALGAN (ACETIC ACID (+) ANTIPYRINE (+) BENZOCAINE (+) GLYCERIN (+) P [Concomitant]
     Indication: PYREXIA
  12. AURALGAN (ACETIC ACID (+) ANTIPYRINE (+) BENZOCAINE (+) GLYCERIN (+) P [Concomitant]
     Indication: EAR PAIN
  13. ALKA-SELTZER PLUS COLD CLASSIC SELTZER [Concomitant]
  14. CORTISPORIN OTIC [Concomitant]
     Indication: PRODUCT USED FOR UNKNOWN INDICATION
  15. ALLEGRA-D [Concomitant]
     Indication: PRODUCT USED FOR UNKNOWN INDICATION
  16. ASPIRIN [Concomitant]
     Indication: PRODUCT USED FOR UNKNOWN INDICATION
  17. ALUMINUM HYDROXIDE [Concomitant]
     Indication: PRODUCT USED FOR UNKNOWN INDICATION
     Dosage: UNK
     Dates: start: 20010606
  18. METOPROLOL TARTRATE [Concomitant]
     Indication: PALPITATIONS
  19. CLONAZEPAM [Concomitant]
     Indication: ANXIETY
     Route: 048
  20. TEMAZEPAM [Concomitant]
     Indication: PRODUCT USED FOR UNKNOWN INDICATION
     Dosage: 15 MG, UNK
  21. OLOPATADINE HYDROCHLORIDE [Concomitant]
     Indication: PRODUCT USED FOR UNKNOWN INDICATION
  22. NICOTINE [Concomitant]
     Indication: EX-TOBACCO USER
     Dosage: PATCH
     Dates: start: 20010606
  23. NICOTINE [Concomitant]
     Indication: ASTHMA
  24. ALBUTEROL SULFATE [Concomitant]
     Indication: PRODUCT USED FOR UNKNOWN INDICATION
     Dosage: 1-2 PUFFS RESPIRATORY (INHALATION)
     Route: 055
     Dates: start: 20010502
  25. BUPROPION HYDROCHLORIDE [Concomitant]
     Indication: PRODUCT USED FOR UNKNOWN INDICATION
     Dosage: 75 MG, UNK
     Dates: start: 20010606
  26. SALMETEROL XINAFOATE [Concomitant]
     Indication: PRODUCT USED FOR UNKNOWN INDICATION
     Dosage: UNK
     Dates: start: 20010205
  27. METHYLPREDNISOLONE SODIUM SUCCINATE [Concomitant]
     Indication: DYSPNOEA
     Dosage: OTHER
     Dates: start: 20010504
  28. PREDNISONE [Concomitant]
     Indication: PRODUCT USED FOR UNKNOWN INDICATION
     Dosage: UNK
     Route: 048
     Dates: start: 20010513
  29. AZITHROMYCIN [Concomitant]
     Indication: PRODUCT USED FOR UNKNOWN INDICATION
     Dosage: UNK
     Dates: start: 200105
  30. FAMOTIDINE [Concomitant]
     Indication: PRODUCT USED FOR UNKNOWN INDICATION
     Dosage: 20 MG, UNK
     Dates: start: 20010606
  31. PREDNISONE [Concomitant]
     Indication: PRODUCT USED FOR UNKNOWN INDICATION
     Dosage: UNK
     Dates: start: 20010504
  32. ACETAMINOPHEN (+) SODIUM BICARBONATE [Concomitant]
     Indication: PRODUCT USED FOR UNKNOWN INDICATION

REACTIONS (45)
  - Computerised tomogram abnormal [Unknown]
  - Electrocardiogram QT prolonged [Unknown]
  - Electrocardiogram abnormal [Unknown]
  - Dyspnoea [Unknown]
  - Drug hypersensitivity [Unknown]
  - Dizziness [Not Recovered/Not Resolved]
  - Diarrhoea [Unknown]
  - Dehydration [Unknown]
  - Defaecation urgency [Unknown]
  - Abdominal distension [Unknown]
  - Condition aggravated [Unknown]
  - Fatigue [Unknown]
  - Blood pressure immeasurable [Unknown]
  - Blood pressure decreased [Unknown]
  - Amylase increased [Unknown]
  - Atrial fibrillation [Unknown]
  - Asthma [Recovered/Resolved]
  - Asthenia [Unknown]
  - Adverse drug reaction [Unknown]
  - Abdominal pain upper [Unknown]
  - Cyanosis [Unknown]
  - Lethargy [Unknown]
  - Suprapubic pain [Unknown]
  - Skin lesion [Unknown]
  - Sepsis [Unknown]
  - Seborrhoeic keratosis [Unknown]
  - Renal failure [Unknown]
  - Radial pulse abnormal [Unknown]
  - Pulse absent [Unknown]
  - Pneumonia [Unknown]
  - Pedal pulse abnormal [Unknown]
  - Electrocardiogram QT shortened [Unknown]
  - Lipase increased [Unknown]
  - Occult blood positive [Unknown]
  - Implant site reaction [Unknown]
  - Hypersensitivity [Unknown]
  - Hepatorenal syndrome [Recovered/Resolved]
  - Hepatic failure [Unknown]
  - Heart rate irregular [Unknown]
  - Heart rate decreased [Unknown]
  - Haematemesis [Unknown]
  - Femoral pulse abnormal [Unknown]
  - Vomiting [Unknown]
  - Multi-organ failure [Unknown]
  - Anuria [Unknown]
